FAERS Safety Report 8162421-3 (Version None)
Quarter: 2012Q1

REPORT INFORMATION
  Report Type: 
  Country: None (occurrence: None)
  Receive Date: 20120221
  Receipt Date: 20120207
  Transmission Date: 20120608
  Serious: Yes (Hospitalization)
  Sender: FDA-Public Use
  Company Number: WAES 1111USA01454

PATIENT
  Age: 55 Year
  Sex: Female
  Weight: 55.3388 kg

DRUGS (9)
  1. PLAVIX [Concomitant]
  2. METOPROLOL SUCCINATE [Concomitant]
  3. TAXOL [Suspect]
     Indication: OVARIAN CANCER
  4. LIPITOR [Concomitant]
  5. ASPIRIN [Concomitant]
  6. ZOFRAN [Concomitant]
  7. PROCHLORPERAZINE MALEATE [Concomitant]
  8. CAP VORINOSTAT UNK [Suspect]
     Indication: OVARIAN CANCER
     Route: 048
  9. CARBOPLATIN [Suspect]
     Indication: OVARIAN CANCER

REACTIONS (17)
  - THROMBOCYTOSIS [None]
  - ALANINE AMINOTRANSFERASE INCREASED [None]
  - BLOOD GLUCOSE INCREASED [None]
  - HYDRONEPHROSIS [None]
  - ANXIETY [None]
  - BLOOD POTASSIUM DECREASED [None]
  - ASPARTATE AMINOTRANSFERASE INCREASED [None]
  - DEEP VEIN THROMBOSIS [None]
  - WOUND DEHISCENCE [None]
  - ABSCESS DRAINAGE [None]
  - ABDOMINAL ABSCESS [None]
  - ANASTOMOTIC LEAK [None]
  - SMALL INTESTINAL PERFORATION [None]
  - TENDERNESS [None]
  - ANAEMIA [None]
  - URINARY TRACT INFECTION [None]
  - LEUKOCYTOSIS [None]
